FAERS Safety Report 6543662-5 (Version None)
Quarter: 2010Q1

REPORT INFORMATION
  Report Type: 
  Country: None (occurrence: None)
  Receive Date: 20100120
  Receipt Date: 20100115
  Transmission Date: 20100710
  Serious: Yes (Hospitalization, Disabling)
  Sender: FDA-Public Use
  Company Number: JP-B.I. PHARMACEUTICALS,INC./RIDGEFIELD-2009-BP-07867NB

PATIENT
  Sex: Female
  Weight: 48.5 kg

DRUGS (5)
  1. MICARDIS [Suspect]
     Indication: HYPERTENSION
     Dosage: 40 MG
     Route: 048
     Dates: start: 20060904, end: 20071208
  2. AMARYL [Concomitant]
     Indication: DIABETES MELLITUS
     Dosage: 1 MG
     Route: 048
     Dates: start: 20070227, end: 20071209
  3. LANIRAPID [Concomitant]
     Dosage: 0.1 MG
     Route: 048
     Dates: start: 20070810, end: 20071209
  4. WARFARIN [Concomitant]
     Indication: PROPHYLAXIS
     Dosage: 2.5 MG
     Route: 048
     Dates: start: 20071018
  5. MOHRUS TAPE [Concomitant]
     Indication: MUSCULOSKELETAL PAIN
     Dosage: 2DF
     Route: 062
     Dates: start: 20051214

REACTIONS (1)
  - AORTIC DISSECTION [None]
